FAERS Safety Report 24751328 (Version 1)
Quarter: 2024Q4

REPORT INFORMATION
  Report Type: Report from Study
  Country: FR (occurrence: FR)
  Receive Date: 20241219
  Receipt Date: 20241219
  Transmission Date: 20250114
  Serious: Yes (Hospitalization, Other)
  Sender: UCB
  Company Number: FR-UCBSA-2024064957

PATIENT
  Sex: Male
  Weight: 18.5 kg

DRUGS (10)
  1. FENFLURAMINE HYDROCHLORIDE [Suspect]
     Active Substance: FENFLURAMINE HYDROCHLORIDE
     Indication: Lennox-Gastaut syndrome
     Dosage: 5.8 MILLIGRAM, 2X/DAY (BID)
     Dates: start: 20240828, end: 20241127
  2. FENFLURAMINE HYDROCHLORIDE [Suspect]
     Active Substance: FENFLURAMINE HYDROCHLORIDE
     Dosage: 4.4 MILLIGRAM
     Dates: start: 20241127
  3. HYDROCORTISONE [Concomitant]
     Active Substance: HYDROCORTISONE
     Indication: Adrenal insufficiency
     Dosage: 4MG MORNING AND 2MG NOON
     Route: 048
     Dates: start: 20241018
  4. VALPROATE SODIUM [Concomitant]
     Active Substance: VALPROATE SODIUM
     Indication: Epilepsy
     Dosage: 250 MILLIGRAM, 2X/DAY (BID)
     Route: 048
     Dates: start: 20230912
  5. TOPIRAMATE [Concomitant]
     Active Substance: TOPIRAMATE
     Indication: Epilepsy
     Dosage: 75 MILLIGRAM, 2X/DAY (BID)
     Route: 048
     Dates: start: 20200605
  6. CLOBAZAM [Concomitant]
     Active Substance: CLOBAZAM
     Indication: Epilepsy
     Dosage: 5-10 MILLIGRAM TWICE DAILY
     Route: 048
     Dates: start: 20210521
  7. FLUTICASONE PROPIONATE [Concomitant]
     Active Substance: FLUTICASONE PROPIONATE
     Indication: Asthma
     Dosage: 100 MICROGRAM, 2X/DAY (BID), 2 PUFFS MORNING AND EVENING
     Dates: start: 20230808
  8. ALBUTEROL SULFATE [Concomitant]
     Active Substance: ALBUTEROL SULFATE
     Indication: Asthma
     Dosage: UNK, AS NEEDED (PRN),2 PUFFS 4 TIMES PER DAY IF NECESSARY
  9. SINGULAIR [Concomitant]
     Active Substance: MONTELUKAST SODIUM
     Indication: Product used for unknown indication
  10. TOPIRAMATE [Concomitant]
     Active Substance: TOPIRAMATE
     Indication: Product used for unknown indication
     Dosage: 75 MILLIGRAM MORNING AND EVENING

REACTIONS (12)
  - Epilepsy [Not Recovered/Not Resolved]
  - Decreased appetite [Unknown]
  - Psychomotor disadaptation syndrome [Unknown]
  - Cerebral haematoma [Unknown]
  - Haematoma [Unknown]
  - Somnolence [Unknown]
  - Rhinitis [Unknown]
  - Cough [Unknown]
  - Asthenia [Unknown]
  - Face injury [Recovered/Resolved with Sequelae]
  - Normocytic anaemia [Unknown]
  - Tympanic membrane hyperaemia [Unknown]

NARRATIVE: CASE EVENT DATE: 20240101
